FAERS Safety Report 6672680-1 (Version None)
Quarter: 2010Q2

REPORT INFORMATION
  Report Type: 
  Country: None (occurrence: None)
  Receive Date: 20100408
  Receipt Date: 20100331
  Transmission Date: 20101027
  Serious: Yes (Hospitalization, Other)
  Sender: FDA-Public Use
  Company Number: US-BAYER-200939728NA

PATIENT
  Age: 38 Year
  Sex: Female
  Weight: 58 kg

DRUGS (9)
  1. NEXAVAR [Suspect]
     Indication: HEAD AND NECK CANCER
     Dosage: TOTAL DAILY DOSE: 800 MG  UNIT DOSE: 200 MG
     Route: 048
     Dates: start: 20091111, end: 20091123
  2. NEXAVAR [Suspect]
     Dosage: TOTAL DAILY DOSE: 800 MG  UNIT DOSE: 200 MG
     Route: 048
     Dates: start: 20091101, end: 20091127
  3. NEXAVAR [Suspect]
     Dosage: TOTAL DAILY DOSE: 200 MG  UNIT DOSE: 200 MG
     Route: 048
     Dates: start: 20091205
  4. NEXAVAR [Suspect]
     Dosage: TOTAL DAILY DOSE: 800 MG  UNIT DOSE: 200 MG
     Route: 048
     Dates: start: 20100101, end: 20100226
  5. NEXAVAR [Suspect]
     Dosage: AS USED: 400-200 MG  UNIT DOSE: 200 MG
     Route: 048
     Dates: start: 20100303
  6. LEVOXYL [Concomitant]
     Dates: end: 20100201
  7. LEVOXYL [Concomitant]
     Dates: start: 20100201
  8. LEXAPRO [Concomitant]
  9. HYDROCODONE BITARTRATE [Concomitant]
     Dosage: AS USED: 5/500 MG

REACTIONS (15)
  - CHILLS [None]
  - DECREASED APPETITE [None]
  - DIARRHOEA [None]
  - DRY SKIN [None]
  - ERYTHEMA [None]
  - GAIT DISTURBANCE [None]
  - GLOSSODYNIA [None]
  - HYPERKERATOSIS [None]
  - ORAL PAIN [None]
  - PAIN IN EXTREMITY [None]
  - PRURITUS [None]
  - PYREXIA [None]
  - RASH PRURITIC [None]
  - SKIN EXFOLIATION [None]
  - SKIN HYPERTROPHY [None]
